FAERS Safety Report 7123501-4 (Version None)
Quarter: 2010Q4

REPORT INFORMATION
  Report Type: 
  Country: None (occurrence: None)
  Receive Date: 20101125
  Receipt Date: 20081224
  Transmission Date: 20110411
  Serious: No
  Sender: FDA-Public Use
  Company Number: 2008BI034925

PATIENT
  Sex: Female

DRUGS (1)
  1. TYSABRI [Suspect]
     Indication: MULTIPLE SCLEROSIS
     Route: 042
     Dates: start: 20081003, end: 20100301

REACTIONS (8)
  - BLADDER DISORDER [None]
  - CHEST PAIN [None]
  - MOBILITY DECREASED [None]
  - NASOPHARYNGITIS [None]
  - NAUSEA [None]
  - PARAESTHESIA OF GENITAL FEMALE [None]
  - SOMNOLENCE [None]
  - VAGINAL DISCHARGE [None]
